FAERS Safety Report 23044443 (Version 1)
Quarter: 2023Q4

REPORT INFORMATION
  Report Type: Spontaneous
  Country: GB (occurrence: None)
  Receive Date: 20231009
  Receipt Date: 20231009
  Transmission Date: 20240110
  Serious: Yes (Other)
  Sender: FDA-Public Use
  Company Number: GB-MHRA-MED-202309251452502530-PDJTZ

PATIENT
  Age: 59 Year
  Sex: Female
  Weight: 60 kg

DRUGS (2)
  1. AMOXICILLIN [Suspect]
     Active Substance: AMOXICILLIN
     Indication: Sinusitis
     Dosage: 500 MG 1 EVERY 8 HOURS; ;
     Dates: start: 20230923, end: 20230923
  2. PNEUMOCOCCAL POLYSACCHARIDE [Concomitant]
     Indication: Product used for unknown indication
     Dates: start: 20230921, end: 20230921

REACTIONS (2)
  - Arthralgia [Unknown]
  - Rash erythematous [Not Recovered/Not Resolved]

NARRATIVE: CASE EVENT DATE: 20230924
